FAERS Safety Report 15153535 (Version 2)
Quarter: 2018Q3

REPORT INFORMATION
  Report Type: Spontaneous
  Country: PL (occurrence: PL)
  Receive Date: 20180717
  Receipt Date: 20180726
  Transmission Date: 20181010
  Serious: Yes (Hospitalization, Other)
  Sender: FDA-Public Use
  Company Number: PHHY2018PL045159

PATIENT
  Sex: Female

DRUGS (3)
  1. DOCETAXEL. [Suspect]
     Active Substance: DOCETAXEL
     Indication: BREAST CANCER
     Dosage: UNK
     Route: 065
  2. HERCEPTIN [Suspect]
     Active Substance: TRASTUZUMAB
     Indication: BREAST CANCER
     Dosage: UNK(17X)
     Route: 065
  3. PERTUZUMAB. [Suspect]
     Active Substance: PERTUZUMAB
     Indication: BREAST CANCER
     Dosage: UNK
     Route: 065

REACTIONS (7)
  - Retracted nipple [Unknown]
  - Haematotoxicity [Unknown]
  - Haemoglobin decreased [Recovered/Resolved]
  - Breast cancer recurrent [Unknown]
  - Disease progression [Unknown]
  - Neuropathy peripheral [Unknown]
  - Skin toxicity [Unknown]

NARRATIVE: CASE EVENT DATE: 201702
